FAERS Safety Report 16188955 (Version 2)
Quarter: 2019Q2

REPORT INFORMATION
  Report Type: Spontaneous
  Country: JP (occurrence: JP)
  Receive Date: 20190412
  Receipt Date: 20190422
  Transmission Date: 20190711
  Serious: No
  Sender: FDA-Public Use
  Company Number: JP-AMGEN-JPNSP2019056078

PATIENT
  Age: 65 Year
  Sex: Female
  Weight: 41.3 kg

DRUGS (9)
  1. FESIN [GUAIFENESIN] [Concomitant]
     Dosage: 40 MILLIGRAM (40 MG, QOD)
     Route: 065
     Dates: start: 20181112
  2. FOSRENOL [Concomitant]
     Active Substance: LANTHANUM CARBONATE
     Dosage: 500 MILLIGRAM (500 MG, QOD)
     Route: 065
  3. OXAROL [Concomitant]
     Active Substance: MAXACALCITOL
     Dosage: 2.5 MICROGRAM, 2 TIMES/WK (2.5 UG, Q84H)
     Route: 065
     Dates: start: 20181105
  4. OXAROL [Concomitant]
     Active Substance: MAXACALCITOL
     Dosage: 2.5 MICROGRAM (2.5 UG, QOD)
     Route: 065
     Dates: start: 20180608, end: 20181102
  5. CARTARETIN [Concomitant]
     Active Substance: CALCIUM CARBONATE
     Dosage: 1500 MILLIGRAM, QD (1500 MG, EVERYDAY)
     Route: 065
  6. PARSABIV [Suspect]
     Active Substance: ETELCALCETIDE HYDROCHLORIDE
     Indication: HYPERPARATHYROIDISM SECONDARY
     Dosage: 5 MILLIGRAM (5 MG, QOD)
     Route: 010
     Dates: start: 20180209, end: 20180307
  7. OXAROL [Concomitant]
     Active Substance: MAXACALCITOL
     Dosage: 5 MILLIGRAM (5 MG, QOD)
     Route: 065
     Dates: start: 20180323, end: 20180606
  8. FOSRENOL [Concomitant]
     Active Substance: LANTHANUM CARBONATE
     Dosage: 750 MILLIGRAM (750 MG, QOD)
     Route: 065
  9. MIRCERA [Concomitant]
     Active Substance: METHOXY POLYETHYLENE GLYCOL-EPOETIN BETA
     Dosage: 50 MICROGRAM, QWK (50 UG, QW)
     Route: 065

REACTIONS (2)
  - Blood calcium decreased [Recovered/Resolved]
  - Blood phosphorus increased [Recovered/Resolved]

NARRATIVE: CASE EVENT DATE: 20180305
